FAERS Safety Report 7813975-5 (Version None)
Quarter: 2011Q4

REPORT INFORMATION
  Report Type: 
  Country: None (occurrence: None)
  Receive Date: 20111014
  Receipt Date: 20111007
  Transmission Date: 20120403
  Serious: Yes (Hospitalization)
  Sender: FDA-Public Use
  Company Number: GB-PFIZER INC-2009235717

PATIENT
  Age: 53 Year
  Sex: Male

DRUGS (4)
  1. HYDROCORTISONE [Concomitant]
     Dosage: 30 MG, 1X/DAY
     Route: 048
     Dates: start: 20030707
  2. DESMOPRESSIN [Concomitant]
     Dosage: 300 UG, 1X/DAY
  3. LEVOTHYROXINE SODIUM [Concomitant]
     Dosage: 250 UG, 1X/DAY
     Route: 048
     Dates: start: 20030217
  4. SOMATROPIN [Suspect]
     Indication: GROWTH HORMONE DEFICIENCY
     Dosage: 5.3 MG, UNK
     Dates: start: 20061205

REACTIONS (1)
  - EPISTAXIS [None]
